FAERS Safety Report 5958667-2 (Version None)
Quarter: 2008Q4

REPORT INFORMATION
  Report Type: 
  Country: None (occurrence: None)
  Receive Date: 20081119
  Receipt Date: 20081114
  Transmission Date: 20090506
  Serious: Yes (Other)
  Sender: FDA-Public Use
  Company Number: US-ASTRAZENECA-2008UW25587

PATIENT
  Age: 64 Year
  Sex: Male
  Weight: 90.7 kg

DRUGS (6)
  1. CRESTOR [Suspect]
     Indication: BLOOD CHOLESTEROL
     Dosage: 10 MG
     Route: 048
     Dates: start: 20060101
  2. CRESTOR [Suspect]
     Dosage: 10 MG
     Route: 048
     Dates: start: 20060101
  3. CRESTOR [Suspect]
     Dosage: 1/4 OF A 10 MG TABLET 5 DAYS A WEEK AND 1/2 OF A 10 MG TABLET 2 DAYS PER WEEK
     Route: 048
  4. ATENOLOL [Concomitant]
  5. ASPIRIN [Concomitant]
  6. PLAVIX [Concomitant]

REACTIONS (2)
  - ARTERIAL OCCLUSIVE DISEASE [None]
  - PAIN IN EXTREMITY [None]
